FAERS Safety Report 4936670-9 (Version None)
Quarter: 2006Q1

REPORT INFORMATION
  Report Type: 
  Country: None (occurrence: None)
  Receive Date: 20060302
  Receipt Date: 20060224
  Transmission Date: 20060701
  Serious: Yes (Death, Hospitalization)
  Sender: FDA-Public Use
  Company Number: MK200602-0302-1

PATIENT
  Sex: Male

DRUGS (1)
  1. DTE 5.OCI LEAD GENERATOR, 10ML [Suspect]
     Indication: BONE SCAN
     Dosage: 25 MCI, ONCE, IV
     Route: 042
     Dates: start: 20051115, end: 20051115

REACTIONS (8)
  - ANAEMIA [None]
  - DYSPNOEA [None]
  - ESCHERICHIA URINARY TRACT INFECTION [None]
  - HAEMATURIA [None]
  - HYPOTENSION [None]
  - NAUSEA [None]
  - PROSTATIC SPECIFIC ANTIGEN INCREASED [None]
  - VOMITING [None]
